FAERS Safety Report 4658031-2 (Version None)
Quarter: 2005Q2

REPORT INFORMATION
  Report Type: 
  Country: None (occurrence: None)
  Receive Date: 20050510
  Receipt Date: 20050503
  Transmission Date: 20051028
  Serious: Yes (Other)
  Sender: FDA-Public Use
  Company Number: GB-MERCK-0505GBR00036

PATIENT
  Age: 56 Year
  Sex: Male

DRUGS (3)
  1. ZETIA [Suspect]
     Indication: BLOOD CHOLESTEROL INCREASED
     Route: 048
     Dates: start: 20050311, end: 20050322
  2. DIAZEPAM [Concomitant]
     Indication: ANXIETY
     Route: 048
  3. GLICLAZIDE [Concomitant]
     Route: 048

REACTIONS (2)
  - HYPOGLYCAEMIA [None]
  - PAIN [None]
